FAERS Safety Report 5350126-3 (Version None)
Quarter: 2007Q2

REPORT INFORMATION
  Report Type: 
  Country: None (occurrence: None)
  Receive Date: 20070607
  Receipt Date: 20070601
  Transmission Date: 20071010
  Serious: Yes (Other)
  Sender: FDA-Public Use
  Company Number: US-MERCK-0702USA03300

PATIENT
  Age: 38 Year
  Sex: Male

DRUGS (3)
  1. FOSAMAX [Suspect]
     Indication: OSTEOPOROSIS
     Route: 048
  2. ZOMETA [Suspect]
     Route: 065
  3. AREDIA [Suspect]
     Route: 065

REACTIONS (4)
  - DEEP VEIN THROMBOSIS [None]
  - DEPRESSION [None]
  - OSTEONECROSIS [None]
  - PULMONARY EMBOLISM [None]
